FAERS Safety Report 8666228 (Version 2)
Quarter: 2012Q4

REPORT INFORMATION
  Report Type: Spontaneous
  Country: US (occurrence: None)
  Receive Date: 20120628
  Receipt Date: 20121010
  Transmission Date: 20130627
  Serious: Yes (Other)
  Sender: FDA-Public Use
  Company Number: 217863

PATIENT
  Sex: Male

DRUGS (2)
  1. PICATO [Suspect]
     Indication: ACTINIC KERATOSIS
     Dosage: TOPICAL
     Route: 061
     Dates: start: 20120613, end: 20120615
  2. TOPROL 50 (METOPROLOL SUCCINATE) [Concomitant]

REACTIONS (8)
  - Periorbital oedema [None]
  - Eye pain [None]
  - Headache [None]
  - Influenza like illness [None]
  - Eyelid oedema [None]
  - Erythema [None]
  - Application site pustules [None]
  - Lacrimation increased [None]
